FAERS Safety Report 10257862 (Version 1)
Quarter: 2014Q3

REPORT INFORMATION
  Report Type: Spontaneous
  Country: IT (occurrence: None)
  Receive Date: 20140716
  Receipt Date: 20140716
  Transmission Date: 20150326
  Serious: Yes (Hospitalization)
  Sender: FDA-Public Use
  Company Number: AG-2014-003479

PATIENT
  Age: 73 Year
  Sex: Male

DRUGS (10)
  1. ASA [Concomitant]
     Active Substance: ASPIRIN
  2. ISONIAZIDE [Concomitant]
     Active Substance: ISONIAZID
  3. PYRIDOXINE [Concomitant]
     Active Substance: PYRIDOXINE
  4. FUROSEMIDE. [Concomitant]
     Active Substance: FUROSEMIDE
  5. OBINUTUZUMAB [Suspect]
     Active Substance: OBINUTUZUMAB
     Indication: CHRONIC LYMPHOCYTIC LEUKAEMIA
     Dosage: CYCLE 1 DAY 1 (25 MG,UNKNOWN),INTRAVENOUS (NOT OTHERWISE SPECIFIED)
     Route: 042
     Dates: start: 20140401
  6. ALLOPURINOL. [Concomitant]
     Active Substance: ALLOPURINOL
  7. LANSOPRAZOLE. [Concomitant]
     Active Substance: LANSOPRAZOLE
  8. CHLORAMBUCIL [Suspect]
     Active Substance: CHLORAMBUCIL
     Indication: CHRONIC LYMPHOCYTIC LEUKAEMIA
     Dosage: CYCLE 1 DAY 1 (0.5 MG/KG,UNKNOWN),ORAL
     Route: 048
     Dates: start: 20140401, end: 20140401
  9. TRIATEC [Concomitant]
     Active Substance: RAMIPRIL
  10. MAGALDRATE (800 MILLIGRAM) [Concomitant]

REACTIONS (1)
  - Pneumonia [None]

NARRATIVE: CASE EVENT DATE: 20140604
